FAERS Safety Report 5465988-9 (Version None)
Quarter: 2007Q3

REPORT INFORMATION
  Report Type: 
  Country: None (occurrence: None)
  Receive Date: 20070924
  Receipt Date: 20070921
  Transmission Date: 20080115
  Serious: No
  Sender: FDA-Public Use
  Company Number: US-BOEHRINGER INGELHEIM PHARMACEUTICALS, INC.-2007-BP-17220BP

PATIENT
  Age: 61 Year
  Sex: Female

DRUGS (1)
  1. METACAM ORAL SUSPENSION [Suspect]
     Route: 031
     Dates: start: 20070621, end: 20070621

REACTIONS (3)
  - ACCIDENTAL EXPOSURE [None]
  - EYE IRRITATION [None]
  - VISUAL DISTURBANCE [None]
